FAERS Safety Report 7787296-3 (Version None)
Quarter: 2011Q3

REPORT INFORMATION
  Report Type: 
  Country: None (occurrence: None)
  Receive Date: 20110929
  Receipt Date: 20110920
  Transmission Date: 20111222
  Serious: Yes (Other)
  Sender: FDA-Public Use
  Company Number: GXBR2011US04775

PATIENT
  Age: 90 Year
  Sex: Female

DRUGS (3)
  1. LEXAPRO [Suspect]
     Indication: ANXIETY
     Dosage: 5 MG, UNK
  2. LEXAPRO [Suspect]
     Dosage: 10 MG, UNK
  3. LORATADINE [Suspect]
     Indication: URTICARIA
     Dosage: 10 MG, QD
     Route: 048
     Dates: start: 20050101

REACTIONS (5)
  - VITREOUS FLOATERS [None]
  - ARTHRITIS [None]
  - INTERVERTEBRAL DISC DISORDER [None]
  - INTERVERTEBRAL DISC COMPRESSION [None]
  - TRANSIENT ISCHAEMIC ATTACK [None]
